FAERS Safety Report 5109833-X (Version None)
Quarter: 2006Q3

REPORT INFORMATION
  Report Type: 
  Country: None (occurrence: None)
  Receive Date: 20060918
  Receipt Date: 20060918
  Transmission Date: 20061208
  Serious: Yes (Hospitalization)
  Sender: FDA-Public Use
  Company Number: None

PATIENT
  Age: 42 Year
  Sex: Male
  Weight: 123 kg

DRUGS (1)
  1. ZOCOR [Suspect]
     Dosage: 80 MG DAILY PO
     Route: 048

REACTIONS (2)
  - HYPERHIDROSIS [None]
  - RHABDOMYOLYSIS [None]
